FAERS Safety Report 9235456 (Version 1)
Quarter: 2013Q1

REPORT INFORMATION
  Report Type: Spontaneous
  Country: US (occurrence: None)
  Receive Date: 20121031
  Receipt Date: 20121031
  Transmission Date: 20140127
  Serious: No
  Sender: FDA-Public Use
  Company Number: PHEH2012US016588

PATIENT
  Age: 33 Year
  Sex: Male
  Weight: 77.1 kg

DRUGS (6)
  1. GILENYA (FTY) CAPSULE, 0.5MG [Suspect]
     Route: 048
     Dates: start: 201107
  2. TRAZODONE (TRAZODONE) [Concomitant]
  3. VALIUM (DIAZEPAM) [Concomitant]
  4. BACLOFEN (BACLOFEN) [Concomitant]
  5. ZANAFLEX (TIZANIDINE HYDROCHLORIDE) [Concomitant]
  6. FLEXERIL (CYCLOBENZAPRINE HYDROCHLORIDE) [Concomitant]

REACTIONS (1)
  - Urinary incontinence [None]
